FAERS Safety Report 24326382 (Version 3)
Quarter: 2025Q1

REPORT INFORMATION
  Report Type: Spontaneous
  Country: US (occurrence: US)
  Receive Date: 20240917
  Receipt Date: 20250108
  Transmission Date: 20250408
  Serious: No
  Sender: JOHNSON AND JOHNSON
  Company Number: US-JNJFOC-20240939292

PATIENT

DRUGS (1)
  1. SIMPONI [Suspect]
     Active Substance: GOLIMUMAB
     Indication: Product used for unknown indication
     Route: 058

REACTIONS (6)
  - Sinusitis [Unknown]
  - Pain [Unknown]
  - Cognitive disorder [Unknown]
  - Memory impairment [Unknown]
  - Coordination abnormal [Unknown]
  - Abdominal pain [Not Recovered/Not Resolved]
